FAERS Safety Report 17770742 (Version 1)
Quarter: 2020Q2

REPORT INFORMATION
  Report Type: Spontaneous
  Country: US (occurrence: US)
  Receive Date: 20200512
  Receipt Date: 20200512
  Transmission Date: 20200714
  Serious: Yes (Hospitalization)
  Sender: FDA-Public Use
  Company Number: None

PATIENT
  Age: 67 Year
  Sex: Female
  Weight: 74.1 kg

DRUGS (2)
  1. CARBOPLATIN (241240) [Suspect]
     Active Substance: CARBOPLATIN
     Dates: end: 20200325
  2. TAXOL [Suspect]
     Active Substance: PACLITAXEL
     Dates: end: 20200402

REACTIONS (12)
  - Disease progression [None]
  - Lymphadenopathy mediastinal [None]
  - Neoplasm malignant [None]
  - Pneumonia [None]
  - Soft tissue mass [None]
  - Bronchostenosis [None]
  - Dyspnoea [None]
  - Tracheal stenosis [None]
  - Haemoglobin decreased [None]
  - Computerised tomogram thorax [None]
  - Packed red blood cell transfusion [None]
  - Sputum retention [None]

NARRATIVE: CASE EVENT DATE: 20200402
